FAERS Safety Report 19885446 (Version 2)
Quarter: 2021Q4

REPORT INFORMATION
  Report Type: Spontaneous
  Country: NL (occurrence: NL)
  Receive Date: 20210927
  Receipt Date: 20211231
  Transmission Date: 20220303
  Serious: Yes (Life-Threatening)
  Sender: FDA-Public Use
  Company Number: NL-LRB-00676570

PATIENT
  Sex: Male

DRUGS (2)
  1. PREGABALIN [Suspect]
     Active Substance: PREGABALIN
     Indication: Neuralgia
     Dosage: 150 MILLIGRAM, BID, 2 X PER DAG 2 CAPSULES
     Route: 065
     Dates: start: 20210402, end: 20210823
  2. TERIFLUNOMIDE TABLET 14MG / AUBAGIO TABLET FILMOMHULD 14MGAUBAGIO T... [Concomitant]
     Indication: Product used for unknown indication
     Dosage: TABLET, 14 MG (MILLIGRAM)
     Route: 065

REACTIONS (2)
  - Suicidal ideation [Recovering/Resolving]
  - Depressed mood [Recovering/Resolving]
